FAERS Safety Report 11324929 (Version 1)
Quarter: 2015Q3

REPORT INFORMATION
  Report Type: Spontaneous
  Country: US (occurrence: US)
  Receive Date: 20150730
  Receipt Date: 20150730
  Transmission Date: 20151125
  Serious: No
  Sender: FDA-Public Use
  Company Number: US-VERTEX PHARMACEUTICALS-2015-003037

PATIENT

DRUGS (1)
  1. KALYDECO [Suspect]
     Active Substance: IVACAFTOR
     Indication: CYSTIC FIBROSIS
     Dosage: UNK
     Route: 048

REACTIONS (4)
  - Nausea [Unknown]
  - Dehydration [Unknown]
  - Hypoglycaemia [Unknown]
  - Vomiting [Unknown]

NARRATIVE: CASE EVENT DATE: 201503
